FAERS Safety Report 22022798 (Version 2)
Quarter: 2023Q1

REPORT INFORMATION
  Report Type: Report from Study
  Country: DE (occurrence: DE)
  Receive Date: 20230222
  Receipt Date: 20230306
  Transmission Date: 20230418
  Serious: Yes (Death, Hospitalization)
  Sender: FDA-Public Use
  Company Number: DE-BAYER-2022A141294

PATIENT
  Age: 51 Year
  Sex: Male
  Weight: 69 kg

DRUGS (6)
  1. REGORAFENIB [Suspect]
     Active Substance: REGORAFENIB
     Indication: Gastrooesophageal cancer
     Dosage: 90 MG
     Route: 048
     Dates: start: 20221006, end: 20221114
  2. NIVOLUMAB [Suspect]
     Active Substance: NIVOLUMAB
     Indication: Gastrooesophageal cancer
     Dosage: 240 MG
     Route: 042
     Dates: start: 20221006, end: 20221103
  3. NOVALGINA [Concomitant]
     Active Substance: ACETAMINOPHEN\CAFFEINE
     Indication: Pain
     Dosage: 1 G
  4. MORPHINE [Concomitant]
     Active Substance: MORPHINE
     Indication: Pain
     Dosage: 5 MG
  5. METAMIZOLE [Concomitant]
     Active Substance: METAMIZOLE
     Dosage: 40 DROP, QID
     Route: 048
     Dates: start: 20221010
  6. MSI [Concomitant]
     Active Substance: MORPHINE SULFATE
     Dosage: 10 MG, QD
     Route: 048
     Dates: start: 20221010, end: 20221014

REACTIONS (2)
  - Breast pain [Fatal]
  - Vomiting [Recovered/Resolved]

NARRATIVE: CASE EVENT DATE: 20221010
